FAERS Safety Report 10080634 (Version 1)
Quarter: 2014Q2

REPORT INFORMATION
  Report Type: Spontaneous
  Country: CA (occurrence: CA)
  Receive Date: 20140416
  Receipt Date: 20140416
  Transmission Date: 20141212
  Serious: Yes (Death)
  Sender: FDA-Public Use
  Company Number: CA-BAYER-2014-055213

PATIENT
  Age: 22 Year
  Sex: Female

DRUGS (1)
  1. YASMIN 28 [Suspect]
     Indication: ACNE
     Dosage: UNK
     Route: 048
     Dates: end: 20130521

REACTIONS (1)
  - Pulmonary embolism [Fatal]
